FAERS Safety Report 6915717-4 (Version None)
Quarter: 2010Q3

REPORT INFORMATION
  Report Type: 
  Country: None (occurrence: None)
  Receive Date: 20100804
  Receipt Date: 20100727
  Transmission Date: 20110219
  Serious: Yes (Hospitalization)
  Sender: FDA-Public Use
  Company Number: JP-1182812

PATIENT
  Age: 83 Year
  Sex: Male

DRUGS (1)
  1. MOXIFLOXACIN HCL [Suspect]
     Dosage: OPHTHALMIC
     Route: 047
     Dates: start: 20100720, end: 20100726

REACTIONS (2)
  - ENDOPHTHALMITIS [None]
  - EYE OPERATION COMPLICATION [None]
